FAERS Safety Report 17967452 (Version 1)
Quarter: 2020Q2

REPORT INFORMATION
  Report Type: Spontaneous
  Country: US (occurrence: US)
  Receive Date: 20200630
  Receipt Date: 20200630
  Transmission Date: 20200714
  Serious: Yes (Hospitalization)
  Sender: FDA-Public Use
  Company Number: None

PATIENT
  Sex: Male
  Weight: 86.6 kg

DRUGS (6)
  1. CYCLOPHOSPHAMIDE. [Suspect]
     Active Substance: CYCLOPHOSPHAMIDE
  2. DOXORUBICIN HYDROCHLORIDE. [Concomitant]
     Active Substance: DOXORUBICIN HYDROCHLORIDE
  3. ETOPOSIDE 9VP-16) [Concomitant]
  4. VINCRISTINE SULFATE. [Concomitant]
     Active Substance: VINCRISTINE SULFATE
  5. PREDNISONE. [Concomitant]
     Active Substance: PREDNISONE
  6. RITUXIMAB (MOAB C2B8 ANTI CD 20, CHIMERIC) [Concomitant]
     Active Substance: RITUXIMAB

REACTIONS (4)
  - Rectal abscess [None]
  - Pseudomonas test positive [None]
  - Febrile neutropenia [None]
  - Blister [None]

NARRATIVE: CASE EVENT DATE: 20200614
